FAERS Safety Report 12061135 (Version 1)
Quarter: 2016Q1

REPORT INFORMATION
  Report Type: Spontaneous
  Country: US (occurrence: US)
  Receive Date: 20160210
  Receipt Date: 20160210
  Transmission Date: 20160526
  Serious: No
  Sender: FDA-Public Use
  Company Number: US-RISING PHARMACEUTICALS, INC.-2015RIS00054

PATIENT
  Age: 82 Year
  Sex: Female
  Weight: 50.79 kg

DRUGS (9)
  1. LANTUS [Concomitant]
     Active Substance: INSULIN GLARGINE
  2. CARVEDILOL. [Concomitant]
     Active Substance: CARVEDILOL
  3. CIPROFLOXACIN. [Suspect]
     Active Substance: CIPROFLOXACIN
     Indication: OCULAR HYPERAEMIA
     Dosage: 2 GTT, 6X/DAY
     Route: 031
     Dates: start: 20150409
  4. CLONIDINE. [Concomitant]
     Active Substance: CLONIDINE
  5. BUMETANIDE. [Concomitant]
     Active Substance: BUMETANIDE
  6. ELIQUIS [Concomitant]
     Active Substance: APIXABAN
  7. HUMALOG [Concomitant]
     Active Substance: INSULIN LISPRO
  8. HYDRALAZINE [Concomitant]
     Active Substance: HYDRALAZINE HYDROCHLORIDE
  9. AMLODIPINE [Concomitant]
     Active Substance: AMLODIPINE BESYLATE

REACTIONS (2)
  - Vision blurred [Recovering/Resolving]
  - Eye disorder [Recovering/Resolving]

NARRATIVE: CASE EVENT DATE: 20150410
